FAERS Safety Report 5317969-3 (Version None)
Quarter: 2007Q2

REPORT INFORMATION
  Report Type: 
  Country: None (occurrence: None)
  Receive Date: 20070507
  Receipt Date: 20070427
  Transmission Date: 20071010
  Serious: Yes (Hospitalization)
  Sender: FDA-Public Use
  Company Number: PHEH2007US06002

PATIENT
  Age: 51 Year
  Sex: Female

DRUGS (1)
  1. ZELNORM [Suspect]
     Indication: GASTROINTESTINAL DISORDER
     Dosage: 6 MG, BID
     Route: 048
     Dates: start: 20030101, end: 20070422

REACTIONS (7)
  - BLOOD PRESSURE FLUCTUATION [None]
  - COLOSTOMY [None]
  - CONSTIPATION [None]
  - HEART RATE IRREGULAR [None]
  - INTESTINAL FUNCTIONAL DISORDER [None]
  - NAUSEA [None]
  - VOMITING [None]
